FAERS Safety Report 4656918-8 (Version None)
Quarter: 2005Q2

REPORT INFORMATION
  Report Type: 
  Country: None (occurrence: None)
  Receive Date: 20050429
  Receipt Date: 20050419
  Transmission Date: 20051028
  Serious: Yes (Hospitalization)
  Sender: FDA-Public Use
  Company Number: 2005-00770

PATIENT
  Age: 23 Year
  Sex: Female
  Weight: 116.5 kg

DRUGS (1)
  1. TUBERSOL [Suspect]
     Indication: TUBERCULIN TEST
     Dosage: (0.01 ML), I.D.
     Dates: start: 20050321

REACTIONS (1)
  - HYPERSENSITIVITY [None]
